FAERS Safety Report 7629997-3 (Version None)
Quarter: 2011Q3

REPORT INFORMATION
  Report Type: 
  Country: None (occurrence: None)
  Receive Date: 20110722
  Receipt Date: 20110624
  Transmission Date: 20111222
  Serious: Yes (Other)
  Sender: FDA-Public Use
  Company Number: US-BAYER-2011-056178

PATIENT
  Age: 64 Year
  Weight: 76.644 kg

DRUGS (4)
  1. CALCIUM CARBONATE [Concomitant]
     Dosage: UNK UNK, TID
     Route: 048
  2. PREVINTION [Concomitant]
     Dosage: 1 DF, BID
     Route: 048
  3. ASPIRIN [Suspect]
     Dosage: 1 DF, QD
     Route: 048
     Dates: start: 20110407, end: 20110515
  4. OMEPRAZOLE [Concomitant]
     Dosage: UNK UNK, BID
     Route: 048

REACTIONS (2)
  - ABDOMINAL PAIN UPPER [None]
  - RECTAL HAEMORRHAGE [None]
